FAERS Safety Report 7359215-5 (Version None)
Quarter: 2011Q1

REPORT INFORMATION
  Report Type: 
  Country: None (occurrence: None)
  Receive Date: 20110317
  Receipt Date: 20110303
  Transmission Date: 20110831
  Serious: Yes (Hospitalization, Other)
  Sender: FDA-Public Use
  Company Number: PHHY2011US17658

PATIENT
  Age: 54 Year
  Sex: Female

DRUGS (6)
  1. RITUXIMAB [Concomitant]
     Dosage: 375 MG/M2, QMO
     Route: 042
     Dates: start: 20100301
  2. EVEROLIMUS [Suspect]
     Dosage: 10 MG, UNK
     Route: 048
     Dates: start: 20100301
  3. EVEROLIMUS [Suspect]
     Dosage: 5 MG, UNK
  4. EVEROLIMUS [Suspect]
     Dosage: 10 MG, DAILY
     Route: 048
  5. RITUXIMAB [Concomitant]
     Dosage: 375 MG/M2, QW
     Route: 042
     Dates: start: 20100201
  6. EVEROLIMUS [Suspect]
     Dosage: 5 MG, DAILY
     Route: 048
     Dates: start: 20100201

REACTIONS (4)
  - NEOPLASM MALIGNANT [None]
  - ENTERITIS [None]
  - ABDOMINAL PAIN [None]
  - ASCITES [None]
